FAERS Safety Report 9449116 (Version 1)
Quarter: 2013Q3

REPORT INFORMATION
  Report Type: Spontaneous
  Country: US (occurrence: None)
  Receive Date: 20130806
  Receipt Date: 20130806
  Transmission Date: 20140515
  Serious: Yes (Hospitalization)
  Sender: FDA-Public Use
  Company Number: 2013US00529

PATIENT
  Age: 50 Year
  Sex: Male

DRUGS (3)
  1. AMLODIPINE [Suspect]
  2. LISINOPRIL [Suspect]
  3. HYDROCHLOROTHIAZIDE [Suspect]

REACTIONS (3)
  - Overdose [None]
  - Shock [None]
  - Respiratory failure [None]
